FAERS Safety Report 4901522-7 (Version None)
Quarter: 2006Q1

REPORT INFORMATION
  Report Type: 
  Country: None (occurrence: None)
  Receive Date: 20060201
  Receipt Date: 20060201
  Transmission Date: 20060701
  Serious: Yes (Other)
  Sender: FDA-Public Use
  Company Number: None

PATIENT
  Age: 70 Year
  Sex: Male
  Weight: 80.2867 kg

DRUGS (3)
  1. EZETIMIBE/SIMVASTATIN 10/80MG [Suspect]
     Indication: DYSLIPIDAEMIA
     Dosage: 1/2 TABLET PO Q BEDTIME
     Route: 048
  2. PAROXETINE HCL [Concomitant]
  3. ATENOLOL [Concomitant]

REACTIONS (1)
  - CONSTIPATION [None]
